FAERS Safety Report 11783401 (Version 1)
Quarter: 2015Q4

REPORT INFORMATION
  Report Type: Report from Study
  Country: US (occurrence: US)
  Receive Date: 20151127
  Receipt Date: 20151127
  Transmission Date: 20160305
  Serious: Yes (Other)
  Sender: FDA-Public Use
  Company Number: US-009507513-1511USA013121

PATIENT
  Age: 61 Year
  Sex: Male

DRUGS (2)
  1. KEYTRUDA [Suspect]
     Active Substance: PEMBROLIZUMAB
     Indication: METASTATIC CARCINOMA OF THE BLADDER
  2. COMPAZINE [Concomitant]
     Active Substance: PROCHLORPERAZINE MALEATE
     Indication: GASTROOESOPHAGEAL REFLUX DISEASE
     Dosage: FOUR TIMES A DAY

REACTIONS (7)
  - Salivary hypersecretion [Unknown]
  - Bone cancer [Unknown]
  - Decreased appetite [Unknown]
  - Hypothyroidism [Unknown]
  - Lactose intolerance [Unknown]
  - Lung neoplasm malignant [Unknown]
  - Dyspnoea [Unknown]
